FAERS Safety Report 9012166 (Version 2)
Quarter: 2013Q1

REPORT INFORMATION
  Report Type: Spontaneous
  Country: US (occurrence: US)
  Receive Date: 20130114
  Receipt Date: 20130214
  Transmission Date: 20140127
  Serious: No
  Sender: FDA-Public Use
  Company Number: US-PFIZER INC-2013013112

PATIENT
  Age: 45 Year
  Sex: Male
  Weight: 79.82 kg

DRUGS (3)
  1. DEPO-MEDROL [Suspect]
     Indication: MUSCULOSKELETAL PAIN
     Dosage: 80 MG, CYCLIC
     Dates: start: 2012
  2. DEPO-MEDROL [Suspect]
     Indication: ROTATOR CUFF SYNDROME
     Dosage: 80 MG/ML, UNK
     Route: 014
     Dates: start: 20130108, end: 20130108
  3. LIDOCAINE HCL [Suspect]
     Dosage: UNK
     Dates: start: 20130108, end: 20130108

REACTIONS (3)
  - Dizziness [Recovered/Resolved]
  - Presyncope [Recovered/Resolved]
  - Pallor [Recovered/Resolved with Sequelae]
